FAERS Safety Report 11328599 (Version 2)
Quarter: 2015Q3

REPORT INFORMATION
  Report Type: Spontaneous
  Country: CH (occurrence: CH)
  Receive Date: 20150731
  Receipt Date: 20150804
  Transmission Date: 20151125
  Serious: Yes (Death)
  Sender: FDA-Public Use
  Company Number: CH-ELI_LILLY_AND_COMPANY-CH201507009677

PATIENT
  Age: 57 Year
  Sex: Male

DRUGS (5)
  1. CYRAMZA [Suspect]
     Active Substance: RAMUCIRUMAB
     Indication: GASTRIC CANCER
     Dosage: 480 MG, CYCLICAL
     Route: 042
     Dates: start: 20150625, end: 20150709
  2. SANDOSTATIN [Concomitant]
     Active Substance: OCTREOTIDE ACETATE
     Indication: VOMITING
  3. SANDOSTATIN [Concomitant]
     Active Substance: OCTREOTIDE ACETATE
     Indication: ILEUS PARALYTIC
     Dosage: 0.3 MG, TID
     Route: 058
     Dates: end: 20150716
  4. MORPHINE [Concomitant]
     Active Substance: MORPHINE
     Indication: DYSPNOEA
     Dosage: 70 MG, QD
     Route: 058
     Dates: end: 20150716
  5. ENOXAPARIN [Concomitant]
     Active Substance: ENOXAPARIN
     Indication: THROMBOSIS PROPHYLAXIS
     Dosage: 40 MG, UNKNOWN
     Route: 058
     Dates: end: 20150716

REACTIONS (5)
  - Pleural effusion [Fatal]
  - Ascites [Fatal]
  - C-reactive protein increased [Unknown]
  - Respiratory distress [Fatal]
  - Malignant neoplasm progression [Fatal]

NARRATIVE: CASE EVENT DATE: 20150713
